FAERS Safety Report 8874677 (Version 2)
Quarter: 2012Q4

REPORT INFORMATION
  Report Type: 
  Country: JP (occurrence: JP)
  Receive Date: 20121031
  Receipt Date: 20121114
  Transmission Date: 20130627
  Serious: Yes (Hospitalization)
  Sender: FDA-Public Use
  Company Number: JP-BAYER-2011-012944

PATIENT
  Age: 82 Year
  Sex: Male

DRUGS (15)
  1. NEXAVAR [Suspect]
     Indication: RENAL CELL CARCINOMA
     Dosage: Daily dose 400 mg
     Route: 048
     Dates: start: 20080616, end: 20091210
  2. NEXAVAR [Suspect]
     Indication: RENAL CELL CARCINOMA
     Dosage: Daily dose 400 mg
     Dates: start: 200905
  3. VOLTAREN - SLOW RELEASE [Suspect]
     Indication: LOW BACK PAIN
     Dosage: Daily dose 75 mg
     Route: 048
     Dates: end: 20091210
  4. PREDONINE [Suspect]
     Indication: TUMOR COMPRESSION
     Dosage: Daily dose 10 mg
     Route: 048
     Dates: start: 20091125, end: 20091210
  5. PREDONINE [Suspect]
     Indication: BONE METASTASES
  6. BAYASPIRIN [Concomitant]
     Indication: TRANSIENT CEREBRAL ISCHAEMIA
     Dosage: Daily dose 100 mg
     Route: 048
     Dates: end: 20091210
  7. TAKEPRON [Concomitant]
     Indication: REFLUX OESOPHAGITIS
     Dosage: Daily dose 15 mg
     Route: 048
  8. BIOFERMIN R [Concomitant]
     Indication: DIARRHOEA
     Dosage: Daily dose 3 g
     Route: 048
     Dates: end: 20091210
  9. HARNAL [Concomitant]
     Indication: PROSTATIC HYPERPLASIA
     Dosage: Daily dose .2 mg
     Route: 048
     Dates: end: 20091210
  10. PARAPROST [AMINOACETIC ACID,BETA-ALANINE,GLUTAMIC ACID] [Concomitant]
     Indication: PROSTATIC HYPERPLASIA
     Dosage: Daily dose 6 DF
     Route: 048
     Dates: end: 20091210
  11. PLETAAL [Concomitant]
     Indication: ARTERIAL OCCLUSION
     Dosage: Daily dose .5 g
     Route: 048
     Dates: end: 20091210
  12. PELTAZON [Concomitant]
     Indication: LOW BACK PAIN
     Dosage: UNK
     Route: 048
     Dates: end: 20091210
  13. OPIOIDS [Concomitant]
     Indication: PAIN NOS
  14. RADIOTHERAPY [Concomitant]
  15. NSAID^S [Concomitant]
     Indication: PAIN

REACTIONS (5)
  - Gastrointestinal perforation [Recovered/Resolved]
  - Peritonitis [Recovered/Resolved]
  - Vomiting [Recovered/Resolved]
  - Abdominal distension [Recovered/Resolved]
  - Abdominal tenderness [Recovered/Resolved]
